FAERS Safety Report 5880421-0 (Version None)
Quarter: 2008Q3

REPORT INFORMATION
  Report Type: 
  Country: None (occurrence: None)
  Receive Date: 20080912
  Receipt Date: 20080623
  Transmission Date: 20090109
  Serious: No
  Sender: FDA-Public Use
  Company Number: US-ABBOTT-08P-163-0441184-00

PATIENT
  Sex: Female
  Weight: 69.916 kg

DRUGS (2)
  1. HUMIRA [Suspect]
     Indication: CROHN'S DISEASE
     Dosage: TWO DOSES
     Route: 058
     Dates: start: 20080304, end: 20080304
  2. HUMIRA [Suspect]
     Dosage: FOUR DOSES
     Route: 058
     Dates: start: 20080219, end: 20080219

REACTIONS (6)
  - CHEST PAIN [None]
  - FATIGUE [None]
  - INSOMNIA [None]
  - MUSCLE SPASMS [None]
  - MUSCULOSKELETAL CHEST PAIN [None]
  - PAIN IN EXTREMITY [None]
